FAERS Safety Report 12090405 (Version 1)
Quarter: 2016Q1

REPORT INFORMATION
  Report Type: Not Available
  Country: None (occurrence: US)
  Receive Date: 20160218
  Receipt Date: 20160218
  Transmission Date: 20160526
  Serious: No
  Sender: FDA-Public Use
  Company Number: US-AKORN-22582

PATIENT

DRUGS (1)
  1. OFLOXACIN OPHTHALMIC [Suspect]
     Active Substance: OFLOXACIN

REACTIONS (3)
  - Condition aggravated [None]
  - Drug ineffective [None]
  - Conjunctivitis [None]

NARRATIVE: CASE EVENT DATE: 20160113
